FAERS Safety Report 15712851 (Version 2)
Quarter: 2019Q1

REPORT INFORMATION
  Report Type: Spontaneous
  Country: DE (occurrence: DE)
  Receive Date: 20181212
  Receipt Date: 20190204
  Transmission Date: 20190417
  Serious: Yes (Life-Threatening, Other)
  Sender: FDA-Public Use
  Company Number: DE-TORRENT-00012491

PATIENT
  Age: 51 Year
  Sex: Male
  Weight: 71 kg

DRUGS (1)
  1. ITRACONAZOL [Suspect]
     Active Substance: ITRACONAZOLE
     Indication: ONYCHOMYCOSIS
     Dosage: INITIALLY DAILY 200 MG FOR 4 WEEKS, TAPERING TO (REDUCED TO) 3X100 MG /WEEK
     Route: 048
     Dates: start: 20171201, end: 20180903

REACTIONS (4)
  - Headache [Recovered/Resolved]
  - Adverse reaction [Recovered/Resolved]
  - Coagulopathy [Recovered/Resolved]
  - Subdural haematoma [Recovered/Resolved]

NARRATIVE: CASE EVENT DATE: 20180601
